FAERS Safety Report 14322199 (Version 3)
Quarter: 2018Q1

REPORT INFORMATION
  Report Type: Report from Study
  Country: CA (occurrence: CA)
  Receive Date: 20171225
  Receipt Date: 20180318
  Transmission Date: 20180509
  Serious: Yes (Other)
  Sender: FDA-Public Use
  Company Number: PHHY2015CA046896

PATIENT
  Age: 82 Year
  Sex: Female

DRUGS (4)
  1. SANDOSTATIN LAR DEPOT [Suspect]
     Active Substance: OCTREOTIDE ACETATE
     Dosage: 20 MG, QMO
     Route: 030
     Dates: start: 20150511
  2. SANDOSTATIN LAR DEPOT [Suspect]
     Active Substance: OCTREOTIDE ACETATE
     Indication: MICROCYTIC ANAEMIA
     Dosage: 10 MG, QMO
     Route: 030
     Dates: start: 20150415, end: 20150415
  3. SANDOSTATIN [Suspect]
     Active Substance: OCTREOTIDE ACETATE
     Indication: MICROCYTIC ANAEMIA
     Dosage: 50 UG, QD
     Route: 058
     Dates: start: 20141006, end: 20141223
  4. BISOPROLOL [Concomitant]
     Active Substance: BISOPROLOL
     Indication: PRODUCT USED FOR UNKNOWN INDICATION
     Dosage: 5 MG, UNK
     Route: 065

REACTIONS (23)
  - Feeling hot [Unknown]
  - Bronchitis [Unknown]
  - Dizziness [Unknown]
  - Product use in unapproved indication [Unknown]
  - Arthralgia [Unknown]
  - Muscle fatigue [Unknown]
  - Abdominal pain upper [Unknown]
  - Headache [Unknown]
  - Body temperature decreased [Unknown]
  - Malaise [Unknown]
  - Gastroenteritis [Unknown]
  - Haemorrhage [Unknown]
  - Gait disturbance [Unknown]
  - Injection site pain [Unknown]
  - Blood pressure systolic increased [Unknown]
  - Heart rate decreased [Unknown]
  - Asthenia [Unknown]
  - Dementia Alzheimer^s type [Unknown]
  - Blood pressure diastolic decreased [Unknown]
  - Cough [Unknown]
  - Blood pressure increased [Unknown]
  - Increased bronchial secretion [Unknown]
  - Abdominal pain [Unknown]

NARRATIVE: CASE EVENT DATE: 20150415
